FAERS Safety Report 6245437-3 (Version None)
Quarter: 2009Q2

REPORT INFORMATION
  Report Type: 
  Country: None (occurrence: None)
  Receive Date: 20090625
  Receipt Date: 20090624
  Transmission Date: 20091009
  Serious: Yes (Hospitalization)
  Sender: FDA-Public Use
  Company Number: DE-WYE-G03913609

PATIENT

DRUGS (2)
  1. VENLAFAXINE HCL [Suspect]
     Dosage: 8 TABLETS/CAPSULES (AMOUNT 300MG)
     Route: 048
     Dates: start: 20090623, end: 20090623
  2. ETHANOL [Suspect]
     Dosage: AMOUNT UNKNOWN
     Route: 048
     Dates: start: 20090623, end: 20090623

REACTIONS (2)
  - DRUG ABUSE [None]
  - FEELING DRUNK [None]
